FAERS Safety Report 4490805-3 (Version None)
Quarter: 2004Q4

REPORT INFORMATION
  Report Type: 
  Country: None (occurrence: None)
  Receive Date: 20041102
  Receipt Date: 20041018
  Transmission Date: 20050328
  Serious: Yes (Hospitalization)
  Sender: FDA-Public Use
  Company Number: US-ROCHE-383750

PATIENT
  Age: 42 Year
  Sex: Male

DRUGS (20)
  1. VALIUM [Suspect]
     Indication: ANXIETY
     Route: 048
     Dates: start: 20040101
  2. DURAGESIC [Suspect]
     Route: 062
     Dates: start: 20031023, end: 20040209
  3. DURAGESIC [Suspect]
     Dosage: UNITS: UG/HR.
     Route: 062
     Dates: start: 20040209
  4. DURAGESIC [Suspect]
     Dosage: UNITS: UG/HR
     Route: 062
     Dates: start: 20040401
  5. DURAGESIC [Suspect]
     Dosage: UNITS: UG/HR.
     Route: 062
  6. PERCOCET [Suspect]
     Route: 048
     Dates: start: 20040101
  7. LORAZEPAM [Concomitant]
  8. PROZAC [Concomitant]
  9. NEURONTIN [Concomitant]
  10. AMBIEN [Concomitant]
  11. AMITRIPTYLINE HCL [Concomitant]
  12. ZYPREXA [Concomitant]
  13. AVELOX [Concomitant]
  14. BIAXIN [Concomitant]
  15. WELLBUTRIN XL [Concomitant]
  16. NABUMETONE [Concomitant]
  17. AMOXICILLIN/CLAVULANIC ACID [Concomitant]
  18. PRILOSEC [Concomitant]
  19. DIPHENHYDRAMINE HCL [Concomitant]
  20. UNKNOWN DRUG [Concomitant]
     Dosage: ANDEHIST (CARBINOXAMINE/BROMPHENIRAMINE/PSEUDOEPHEDRINE)

REACTIONS (47)
  - ABDOMINAL PAIN UPPER [None]
  - ANAEMIA [None]
  - ARTHRALGIA [None]
  - ASTHENIA [None]
  - ATELECTASIS [None]
  - BLOOD LACTATE DEHYDROGENASE INCREASED [None]
  - BLOOD PRESSURE INCREASED [None]
  - BRONCHITIS [None]
  - CARDIOMEGALY [None]
  - CHEST PAIN [None]
  - CHEST WALL PAIN [None]
  - CONFUSIONAL STATE [None]
  - CONTUSION [None]
  - COUGH [None]
  - DENTAL CARIES [None]
  - DERMATITIS CONTACT [None]
  - DIARRHOEA [None]
  - DYSARTHRIA [None]
  - DYSPNOEA [None]
  - DYSURIA [None]
  - FAECES DISCOLOURED [None]
  - FALL [None]
  - GASTRITIS [None]
  - GASTROOESOPHAGEAL REFLUX DISEASE [None]
  - HEADACHE [None]
  - HEART RATE INCREASED [None]
  - HIATUS HERNIA [None]
  - HYPOGONADISM [None]
  - HYPOXIA [None]
  - INTERVERTEBRAL DISC DEGENERATION [None]
  - LIVER FUNCTION TEST ABNORMAL [None]
  - LOSS OF CONSCIOUSNESS [None]
  - MELAENA [None]
  - MIGRAINE [None]
  - NAUSEA [None]
  - NECK PAIN [None]
  - OESOPHAGITIS [None]
  - PANIC ATTACK [None]
  - PHARMACEUTICAL PRODUCT COMPLAINT [None]
  - PLEURAL EFFUSION [None]
  - PNEUMONITIS [None]
  - PROTEIN TOTAL INCREASED [None]
  - RASH [None]
  - RECTAL POLYP [None]
  - RIB FRACTURE [None]
  - SPONDYLOSIS [None]
  - URTICARIA [None]
